FAERS Safety Report 9080097 (Version 1)
Quarter: 2013Q1

REPORT INFORMATION
  Report Type: Report from Study
  Country: US (occurrence: US)
  Receive Date: 20130130
  Receipt Date: 20130130
  Transmission Date: 20140127
  Serious: No
  Sender: FDA-Public Use
  Company Number: US-ABBOTT-12P-163-0977541-00

PATIENT
  Sex: Male
  Weight: 79.45 kg

DRUGS (4)
  1. HUMIRA [Suspect]
     Indication: CROHN^S DISEASE
     Route: 058
     Dates: start: 201206, end: 20120829
  2. HUMIRA [Suspect]
     Route: 058
     Dates: start: 20120905
  3. CYLEXA [Concomitant]
     Indication: CROHN^S DISEASE
  4. PREVACID [Concomitant]
     Indication: ABDOMINAL DISCOMFORT

REACTIONS (2)
  - Off label use [Not Recovered/Not Resolved]
  - Colitis [Not Recovered/Not Resolved]
